FAERS Safety Report 21254466 (Version 13)
Quarter: 2023Q2

REPORT INFORMATION
  Report Type: Spontaneous
  Country: US (occurrence: US)
  Receive Date: 20220825
  Receipt Date: 20230620
  Transmission Date: 20230721
  Serious: No
  Sender: FDA-Public Use
  Company Number: US-PFIZER INC-2019047409

PATIENT
  Age: 90 Year
  Sex: Female
  Weight: 63.05 kg

DRUGS (3)
  1. ESTRING [Suspect]
     Active Substance: ESTRADIOL
     Indication: Pollakiuria
     Dosage: 2 MG, EVERY 3 MONTHS
     Route: 067
     Dates: start: 2018
  2. ESTRING [Suspect]
     Active Substance: ESTRADIOL
     Indication: Nocturia
     Dosage: INSERT 1 Q3 MONTHS
     Route: 067
  3. XANAX [Concomitant]
     Active Substance: ALPRAZOLAM
     Dosage: 1/2-1 TABLET TID PRN
     Route: 048
     Dates: start: 20221028

REACTIONS (6)
  - Device use issue [Unknown]
  - Dysphonia [Unknown]
  - Confusional state [Unknown]
  - Product prescribing error [Unknown]
  - Expired product administered [Unknown]
  - Off label use [Unknown]

NARRATIVE: CASE EVENT DATE: 20180101
